FAERS Safety Report 8312760-8 (Version None)
Quarter: 2012Q2

REPORT INFORMATION
  Report Type: 
  Country: None (occurrence: None)
  Receive Date: 20120426
  Receipt Date: 20120420
  Transmission Date: 20120825
  Serious: Yes (Other)
  Sender: FDA-Public Use
  Company Number: US-AMGEN-USASP2012025200

PATIENT
  Age: 80 Year
  Sex: Female

DRUGS (1)
  1. ARANESP [Suspect]
     Indication: BLOOD DISORDER
     Dosage: UNK

REACTIONS (3)
  - OVARIAN CANCER [None]
  - ARTHRALGIA [None]
  - INTESTINAL MASS [None]
